FAERS Safety Report 13034795 (Version 1)
Quarter: 2016Q4

REPORT INFORMATION
  Report Type: Spontaneous
  Country: BR (occurrence: BR)
  Receive Date: 20161216
  Receipt Date: 20161216
  Transmission Date: 20170207
  Serious: Yes (Hospitalization, Other)
  Sender: FDA-Public Use
  Company Number: BR-009507513-1612BRA004712

PATIENT
  Age: 41 Year
  Sex: Female

DRUGS (5)
  1. IMPLANON [Suspect]
     Active Substance: ETONOGESTREL
     Indication: CONTRACEPTION
     Dosage: ONE IMPLANT FOR 3 YEARS
     Route: 058
     Dates: start: 200104, end: 200404
  2. IMPLANON [Suspect]
     Active Substance: ETONOGESTREL
     Dosage: ONE IMPLANT FOR 3 YEARS
     Route: 058
     Dates: start: 2010, end: 2013
  3. IMPLANON [Suspect]
     Active Substance: ETONOGESTREL
     Dosage: ONE IMPLANT FOR 3 YEARS
     Route: 058
     Dates: start: 2007, end: 2010
  4. IMPLANON [Suspect]
     Active Substance: ETONOGESTREL
     Dosage: ONE IMPLANT FOR 3 YEARS
     Route: 058
     Dates: start: 2004, end: 2007
  5. IMPLANON [Suspect]
     Active Substance: ETONOGESTREL
     Dosage: ONE IMPLANT FOR 3 YEARS
     Route: 058
     Dates: start: 20131128

REACTIONS (4)
  - Expired product administered [Unknown]
  - Mastectomy [Unknown]
  - Breast cancer [Recovered/Resolved]
  - Pulmonary mass [Recovered/Resolved]

NARRATIVE: CASE EVENT DATE: 2012
